FAERS Safety Report 12108357 (Version 3)
Quarter: 2016Q2

REPORT INFORMATION
  Report Type: Report from Study
  Country: GB (occurrence: GB)
  Receive Date: 20160224
  Receipt Date: 20160614
  Transmission Date: 20160815
  Serious: Yes (Hospitalization, Other)
  Sender: FDA-Public Use
  Company Number: GB-ROCHE-1696297

PATIENT
  Age: 67 Year
  Sex: Female
  Weight: 47 kg

DRUGS (3)
  1. ESBRIET [Suspect]
     Active Substance: PIRFENIDONE
     Indication: IDIOPATHIC PULMONARY FIBROSIS
     Route: 048
     Dates: start: 20160110
  2. PREDNISONE. [Concomitant]
     Active Substance: PREDNISONE
     Dosage: OD
     Route: 065
  3. ESBRIET [Suspect]
     Active Substance: PIRFENIDONE
     Route: 048
     Dates: start: 20160111

REACTIONS (15)
  - Bronchiectasis [Unknown]
  - Pseudomonas infection [Unknown]
  - Muscle atrophy [Unknown]
  - Lethargy [Not Recovered/Not Resolved]
  - Dry eye [Unknown]
  - Asthenia [Unknown]
  - Nausea [Not Recovered/Not Resolved]
  - Fatigue [Unknown]
  - Syncope [Unknown]
  - Abdominal discomfort [Unknown]
  - Weight decreased [Unknown]
  - Medication error [Unknown]
  - Infection [Unknown]
  - Dry mouth [Unknown]
  - Sjogren^s syndrome [Unknown]

NARRATIVE: CASE EVENT DATE: 20160111
